FAERS Safety Report 20351447 (Version 3)
Quarter: 2024Q1

REPORT INFORMATION
  Report Type: Spontaneous
  Country: US (occurrence: US)
  Receive Date: 20220119
  Receipt Date: 20240314
  Transmission Date: 20240409
  Serious: Yes (Other)
  Sender: FDA-Public Use
  Company Number: US-PFIZER INC-202101410689

PATIENT
  Age: 72 Year
  Sex: Female
  Weight: 60.33 kg

DRUGS (1)
  1. TOVIAZ [Suspect]
     Active Substance: FESOTERODINE FUMARATE
     Indication: Hypertonic bladder
     Dosage: 8 MG, 1X/DAY, FOR SEVERAL YEARS, PROBABLY AT LEAST 4 OR 5 YEARS
     Route: 048

REACTIONS (3)
  - Foot operation [Unknown]
  - Memory impairment [Not Recovered/Not Resolved]
  - Body height decreased [Unknown]

NARRATIVE: CASE EVENT DATE: 20211020
